FAERS Safety Report 22230079 (Version 1)
Quarter: 2023Q2

REPORT INFORMATION
  Report Type: Spontaneous
  Country: US (occurrence: US)
  Receive Date: 20230419
  Receipt Date: 20230419
  Transmission Date: 20230721
  Serious: No
  Sender: FDA-Public Use
  Company Number: US-009507513-2304USA005078

PATIENT
  Age: 74 Year
  Sex: Male

DRUGS (6)
  1. CUBICIN [Suspect]
     Active Substance: DAPTOMYCIN
     Indication: Enterobacter infection
  2. CUBICIN [Suspect]
     Active Substance: DAPTOMYCIN
     Indication: Bacterial infection
  3. CUBICIN [Suspect]
     Active Substance: DAPTOMYCIN
     Indication: Candida infection
  4. CEFEPIME [Concomitant]
     Active Substance: CEFEPIME HYDROCHLORIDE
  5. METRONIDAZOLE [Concomitant]
     Active Substance: METRONIDAZOLE
  6. FLUCONAZOLE [Concomitant]
     Active Substance: FLUCONAZOLE

REACTIONS (1)
  - Product use in unapproved indication [Unknown]
